FAERS Safety Report 4343890-3 (Version None)
Quarter: 2004Q2

REPORT INFORMATION
  Report Type: 
  Country: None (occurrence: None)
  Receive Date: 20040422
  Receipt Date: 20040409
  Transmission Date: 20050107
  Serious: Yes (Hospitalization)
  Sender: FDA-Public Use
  Company Number: PHEH2004US04135

PATIENT

DRUGS (4)
  1. ZELNORM [Suspect]
  2. CORDARONE [Suspect]
  3. DIGOXIN [Suspect]
  4. LASIX [Suspect]

REACTIONS (3)
  - DELUSION [None]
  - HALLUCINATION [None]
  - MOOD SWINGS [None]
